FAERS Safety Report 9235009 (Version 2)
Quarter: 2013Q2

REPORT INFORMATION
  Report Type: Spontaneous
  Country: US (occurrence: US)
  Receive Date: 20130416
  Receipt Date: 20130516
  Transmission Date: 20140414
  Serious: No
  Sender: FDA-Public Use
  Company Number: US-B.I. PHARMACEUTICALS,INC./RIDGEFIELD-2013-BI-09064BP

PATIENT
  Age: 80 Year
  Sex: Female
  Weight: 80.74 kg

DRUGS (4)
  1. SPIRIVA [Suspect]
     Indication: ASTHMA
     Dosage: 18 MCG
     Route: 055
     Dates: start: 20120820
  2. QVAR [Concomitant]
     Route: 055
  3. VENTOLIN [Concomitant]
     Route: 055
  4. SYMBICORT [Concomitant]
     Route: 055

REACTIONS (1)
  - Memory impairment [Not Recovered/Not Resolved]
